FAERS Safety Report 5236962-2 (Version None)
Quarter: 2007Q1

REPORT INFORMATION
  Report Type: 
  Country: None (occurrence: None)
  Receive Date: 20070209
  Receipt Date: 20070126
  Transmission Date: 20070707
  Serious: No
  Sender: FDA-Public Use
  Company Number: 2006PV025932

PATIENT
  Age: 73 Year
  Sex: Female

DRUGS (2)
  1. BYETTA [Suspect]
     Indication: DIABETES MELLITUS
     Dosage: 10 MCG, BID; SC, 5 MCG, BID; SC
     Route: 058
     Dates: start: 20051115, end: 20051215
  2. BYETTA [Suspect]
     Indication: DIABETES MELLITUS
     Dosage: 10 MCG, BID; SC, 5 MCG, BID; SC
     Route: 058
     Dates: start: 20051216

REACTIONS (1)
  - BLOOD GLUCOSE FLUCTUATION [None]
